FAERS Safety Report 6854956-8 (Version None)
Quarter: 2010Q3

REPORT INFORMATION
  Report Type: 
  Country: None (occurrence: None)
  Receive Date: 20100717
  Receipt Date: 20080325
  Transmission Date: 20110219
  Serious: No
  Sender: FDA-Public Use
  Company Number: US-PFIZER INC-2007105803

PATIENT
  Sex: Male
  Weight: 86.6 kg

DRUGS (3)
  1. CHANTIX [Suspect]
     Indication: SMOKING CESSATION THERAPY
     Dates: start: 20071001
  2. ASPIRIN [Concomitant]
  3. EC [Concomitant]

REACTIONS (2)
  - ABNORMAL DREAMS [None]
  - DECREASED INTEREST [None]
